FAERS Safety Report 17397337 (Version 1)
Quarter: 2020Q1

REPORT INFORMATION
  Report Type: Spontaneous
  Country: US (occurrence: US)
  Receive Date: 20200210
  Receipt Date: 20200210
  Transmission Date: 20200409
  Serious: No
  Sender: FDA-Public Use
  Company Number: US-JNJFOC-20200203723

PATIENT
  Sex: Female
  Weight: 70.37 kg

DRUGS (5)
  1. PROPRANOLOL [Concomitant]
     Active Substance: PROPRANOLOL HYDROCHLORIDE
     Route: 065
  2. TOPAMAX [Suspect]
     Active Substance: TOPIRAMATE
     Indication: PRODUCT USED FOR UNKNOWN INDICATION
     Route: 048
  3. TOPAMAX [Suspect]
     Active Substance: TOPIRAMATE
     Dosage: 50 MG IN AM AND 75 MG IN PM
     Route: 048
  4. OXYCODONE [Concomitant]
     Active Substance: OXYCODONE
     Route: 065
  5. TOPAMAX [Suspect]
     Active Substance: TOPIRAMATE
     Route: 048

REACTIONS (15)
  - Performance fear [Unknown]
  - Tremor [Unknown]
  - Panic attack [Unknown]
  - Impaired driving ability [Unknown]
  - Paraesthesia [Unknown]
  - Weight decreased [Unknown]
  - Feeling abnormal [Unknown]
  - Flatulence [Unknown]
  - Asthenia [Unknown]
  - Decreased appetite [Unknown]
  - Dizziness [Unknown]
  - Hypoaesthesia [Unknown]
  - Weight increased [Unknown]
  - Cough [Unknown]
  - Nasal congestion [Unknown]
